FAERS Safety Report 7080731-8 (Version None)
Quarter: 2010Q4

REPORT INFORMATION
  Report Type: 
  Country: None (occurrence: None)
  Receive Date: 20101022
  Receipt Date: 20101012
  Transmission Date: 20110411
  Serious: Yes (Other)
  Sender: FDA-Public Use
  Company Number: 2010PL000154

PATIENT
  Age: 21 Year
  Sex: Female

DRUGS (5)
  1. MERCAPTOPURINE [Suspect]
     Indication: CROHN'S DISEASE
     Dosage: 50 MG; QD;
     Dates: start: 20070901, end: 20081201
  2. ANTI-TUMOR NECROSIS FACTOR MONOCLON. ANTIBODY (ANTI-TUMOR NECROSIS FAC [Suspect]
     Indication: CROHN'S DISEASE
     Dates: start: 20081201, end: 20090501
  3. PREDNISONE [Concomitant]
  4. MESALAZINE [Concomitant]
  5. ENTOCORT EC [Concomitant]

REACTIONS (1)
  - ACUTE MYELOID LEUKAEMIA [None]
